FAERS Safety Report 10091794 (Version 3)
Quarter: 2015Q3

REPORT INFORMATION
  Report Type: Spontaneous
  Country: US (occurrence: US)
  Receive Date: 20140421
  Receipt Date: 20150812
  Transmission Date: 20151125
  Serious: No
  Sender: FDA-Public Use
  Company Number: US-GILEAD-2012-0056776

PATIENT
  Age: 25 Year
  Sex: Female
  Weight: 85.4 kg

DRUGS (5)
  1. LETAIRIS [Suspect]
     Active Substance: AMBRISENTAN
     Indication: PULMONARY HYPERTENSION
     Dosage: 5 MG, UNK
     Route: 048
     Dates: start: 20120321
  2. PREDNISONE. [Concomitant]
     Active Substance: PREDNISONE
  3. MYCOPHENOLATE [Concomitant]
     Active Substance: MYCOPHENOLIC ACID
  4. TACROLIMUS. [Concomitant]
     Active Substance: TACROLIMUS
  5. ACIPHEX [Concomitant]
     Active Substance: RABEPRAZOLE SODIUM

REACTIONS (1)
  - Migraine [Recovered/Resolved]
